FAERS Safety Report 4645772-6 (Version None)
Quarter: 2005Q2

REPORT INFORMATION
  Report Type: 
  Country: None (occurrence: None)
  Receive Date: 20050425
  Receipt Date: 20050419
  Transmission Date: 20051028
  Serious: Yes (Death, Life-Threatening, Other)
  Sender: FDA-Public Use
  Company Number: 2005-03-0756

PATIENT
  Age: 50 Year
  Sex: Female
  Weight: 59.8748 kg

DRUGS (5)
  1. PEG-INTRON [Suspect]
     Dosage: SEE IMAGE
     Route: 058
     Dates: start: 20040412, end: 20050130
  2. PEG-INTRON [Suspect]
     Dosage: SEE IMAGE
     Route: 058
     Dates: start: 20050131
  3. RIBAVIRIN [Suspect]
     Dosage: SEE IMAGE
     Route: 048
     Dates: start: 20040412, end: 20050130
  4. RIBAVIRIN [Suspect]
     Dosage: SEE IMAGE
     Route: 048
     Dates: start: 20050131
  5. WELLBUTRIN [Concomitant]

REACTIONS (5)
  - ACCIDENTAL OVERDOSE [None]
  - ANAEMIA [None]
  - COMPLETED SUICIDE [None]
  - DRUG LEVEL ABOVE THERAPEUTIC [None]
  - WEIGHT DECREASED [None]
